FAERS Safety Report 8390134-1 (Version None)
Quarter: 2012Q2

REPORT INFORMATION
  Report Type: 
  Country: None (occurrence: None)
  Receive Date: 20120529
  Receipt Date: 20120522
  Transmission Date: 20120825
  Serious: Yes (Other)
  Sender: FDA-Public Use
  Company Number: US-BAYER-2011-100987

PATIENT
  Age: 41 Year
  Sex: Male
  Weight: 81.179 kg

DRUGS (23)
  1. BETASERON [Suspect]
     Indication: MULTIPLE SCLEROSIS
     Dosage: 8 MIU, QOD
     Route: 058
     Dates: start: 20021127
  2. ZOLOFT [Concomitant]
     Dosage: 100 MG, QD
     Route: 048
  3. CLONIDINE [Concomitant]
     Dosage: .1 MG, NOON AND HS PRN
     Route: 048
  4. ZESTRIL [Concomitant]
     Dosage: 20 MG, BID
  5. PHENERGAN [Concomitant]
     Dosage: 25 MG, PRN
     Route: 048
  6. ZANAFLEX [Concomitant]
     Dosage: 4 MG, PRN
  7. RENVELA [Concomitant]
     Dosage: 800 UNK, ONE TABLET WITH MEALS
  8. PROTONIX [Concomitant]
     Dosage: 40 MG, QD
     Route: 048
  9. FISH OIL [Concomitant]
     Dosage: 870 MG, QD
     Route: 048
  10. PRAVACHOL [Concomitant]
     Dosage: 40 MG, QOD
  11. UROXATRAL [Concomitant]
     Dosage: 10 MG, HS
  12. LOPID [Concomitant]
     Dosage: 600 MG, UNK
  13. METOPROLOL TARTRATE [Concomitant]
     Dosage: DAILY DOSE 50 MG
  14. SODIUM BICARBONATE [Concomitant]
     Dosage: 650 MG, BID
     Route: 048
  15. AMBIEN [Concomitant]
     Dosage: 10 MG, HS
     Route: 048
  16. PEPCID AC [Concomitant]
     Dosage: 20 MG, QD
     Route: 048
  17. ASPIRIN [Concomitant]
     Dosage: 81 MG, QD
     Route: 048
  18. CYANOCOBALAMIN [Concomitant]
     Dosage: 1000 MG, Q1MON
     Route: 030
  19. BACLOFEN [Concomitant]
     Dosage: 10 MG, TID PRN
     Route: 048
  20. METHYLPHENIDATE [Concomitant]
     Dosage: 10 MG, UNK
     Route: 048
  21. FOLIC ACID [Concomitant]
     Dosage: 1 MG, QD
     Route: 048
  22. ACETAMINOPHEN [Concomitant]
     Indication: PREMEDICATION
     Dosage: 500MG 2 TABLETS AM/PM WHEN HE TAKES INJECTION
     Route: 048
  23. PREDNISONE TAB [Concomitant]
     Dosage: 10 MG, WHEN HE TAKES INJECTION
     Route: 048

REACTIONS (13)
  - HYPERTENSION [None]
  - PYREXIA [None]
  - RENAL IMPAIRMENT [None]
  - RENAL FAILURE [None]
  - MULTIPLE SCLEROSIS [None]
  - ASTHENIA [None]
  - ARTHRALGIA [None]
  - ATAXIA [None]
  - BALANCE DISORDER [None]
  - MUSCULAR WEAKNESS [None]
  - FATIGUE [None]
  - MULTIPLE SCLEROSIS RELAPSE [None]
  - GAIT DISTURBANCE [None]
